FAERS Safety Report 4733650-3 (Version None)
Quarter: 2005Q3

REPORT INFORMATION
  Report Type: 
  Country: None (occurrence: None)
  Receive Date: 20050729
  Receipt Date: 20050713
  Transmission Date: 20060218
  Serious: No
  Sender: FDA-Public Use
  Company Number: GBS050717882

PATIENT
  Sex: Female

DRUGS (1)
  1. CYMBALTA [Suspect]
     Dosage: 60 MG
     Dates: start: 20050628

REACTIONS (4)
  - ALCOHOL USE [None]
  - HYPERHIDROSIS [None]
  - JAUNDICE [None]
  - TREMOR [None]
